FAERS Safety Report 5894756-9 (Version None)
Quarter: 2008Q3

REPORT INFORMATION
  Report Type: 
  Country: None (occurrence: None)
  Receive Date: 20080924
  Receipt Date: 20080424
  Transmission Date: 20090109
  Serious: No
  Sender: FDA-Public Use
  Company Number: US-ASTRAZENECA-2008UW08374

PATIENT
  Sex: Male

DRUGS (1)
  1. SEROQUEL XR [Suspect]
     Indication: TRAUMATIC BRAIN INJURY
     Route: 048

REACTIONS (3)
  - MEDICATION ERROR [None]
  - SEDATION [None]
  - SOMNOLENCE [None]
